FAERS Safety Report 8475384-8 (Version None)
Quarter: 2012Q2

REPORT INFORMATION
  Report Type: 
  Country: None (occurrence: None)
  Receive Date: 20120628
  Receipt Date: 20120627
  Transmission Date: 20120825
  Serious: No
  Sender: FDA-Public Use
  Company Number: US-BAYER-2012-063836

PATIENT

DRUGS (1)
  1. GADAVIST [Suspect]

REACTIONS (1)
  - URTICARIA [None]
